FAERS Safety Report 7577659-3 (Version None)
Quarter: 2011Q2

REPORT INFORMATION
  Report Type: 
  Country: None (occurrence: None)
  Receive Date: 20110621
  Receipt Date: 20110606
  Transmission Date: 20111010
  Serious: Yes (Death, Other)
  Sender: FDA-Public Use
  Company Number: 2011MA006872

PATIENT
  Age: 20 Year
  Sex: Female

DRUGS (5)
  1. SALICYCLIC ACID [Suspect]
  2. SODIUM OXYBATE [Suspect]
  3. COCAINE (COCAINE) [Suspect]
  4. CITALOPRAM HYDROBROMIDE [Suspect]
  5. AMPHETAMINES (NO PREF. NAME) [Suspect]

REACTIONS (2)
  - OVERDOSE [None]
  - TOXICITY TO VARIOUS AGENTS [None]
